FAERS Safety Report 18297622 (Version 1)
Quarter: 2020Q3

REPORT INFORMATION
  Report Type: Spontaneous
  Country: JP (occurrence: JP)
  Receive Date: 20200922
  Receipt Date: 20200922
  Transmission Date: 20201103
  Serious: Yes (Other)
  Sender: FDA-Public Use
  Company Number: JP-JNJFOC-20200820505

PATIENT
  Age: 71 Year
  Sex: Male
  Weight: 60 kg

DRUGS (6)
  1. CLARITIN [Concomitant]
     Active Substance: LORATADINE
     Dosage: 10 MG, QD
     Route: 048
     Dates: start: 20200130
  2. MAINTATE [Concomitant]
     Active Substance: BISOPROLOL FUMARATE
     Dosage: 2.5 MG, QD
     Route: 048
  3. CRESTOR OD [Concomitant]
     Active Substance: ROSUVASTATIN CALCIUM
     Dosage: 5 MG, QD
     Route: 048
  4. XARELTO [Suspect]
     Active Substance: RIVAROXABAN
     Indication: ATRIAL FIBRILLATION
     Dosage: 10 MG, QD
     Route: 048
     Dates: start: 20190919, end: 20200813
  5. FEBURIC [Concomitant]
     Active Substance: FEBUXOSTAT
     Dosage: 20 MG, QD
     Route: 048
  6. ADONA [CARBAZOCHROME SODIUM SULFONATE] [Concomitant]
     Active Substance: CARBAZOCHROME SODIUM SULFONATE

REACTIONS (3)
  - Retinal haemorrhage [Unknown]
  - Conjunctival haemorrhage [Recovering/Resolving]
  - Conjunctival hyperaemia [Recovering/Resolving]

NARRATIVE: CASE EVENT DATE: 202008
